FAERS Safety Report 8190522-2 (Version None)
Quarter: 2012Q1

REPORT INFORMATION
  Report Type: 
  Country: None (occurrence: None)
  Receive Date: 20120305
  Receipt Date: 20120222
  Transmission Date: 20120608
  Serious: Yes (Other)
  Sender: FDA-Public Use
  Company Number: 2012MA002677

PATIENT
  Sex: Female

DRUGS (2)
  1. KEPPRA [Concomitant]
  2. LEVETIRACETAM [Suspect]
     Indication: PRODUCT USED FOR UNKNOWN INDICATION
     Dosage: 1000 MG;BID
     Dates: start: 20120110

REACTIONS (2)
  - EPILEPSY [None]
  - PRODUCT SUBSTITUTION ISSUE [None]
